FAERS Safety Report 25949008 (Version 1)
Quarter: 2025Q4

REPORT INFORMATION
  Report Type: Spontaneous
  Country: EU (occurrence: EU)
  Receive Date: 20251022
  Receipt Date: 20251022
  Transmission Date: 20260117
  Serious: Yes (Death, Other)
  Sender: FRESENIUS KABI
  Company Number: EU-FreseniusKabi-FK202514319

PATIENT

DRUGS (13)
  1. ONDANSETRON [Suspect]
     Active Substance: ONDANSETRON
     Indication: Drug abuse
  2. PROPOFOL [Suspect]
     Active Substance: PROPOFOL
     Indication: Product used for unknown indication
     Dosage: 50-ML VIAL ?FOA: EMULSION FOR INJECTION?STRENGTH: 20MG/ML
  3. FENTANYL [Suspect]
     Active Substance: FENTANYL
     Indication: Drug abuse
  4. VENLAFAXINE [Suspect]
     Active Substance: VENLAFAXINE HYDROCHLORIDE
     Indication: Drug abuse
  5. QUETIAPINE [Suspect]
     Active Substance: QUETIAPINE
     Indication: Drug abuse
  6. DIAZEPAM [Suspect]
     Active Substance: DIAZEPAM
     Indication: Drug abuse
  7. CLONAZEPAM [Suspect]
     Active Substance: CLONAZEPAM
     Indication: Drug abuse
  8. ALPRAZOLAM [Suspect]
     Active Substance: ALPRAZOLAM
     Indication: Drug abuse
  9. NAPROXEN [Suspect]
     Active Substance: NAPROXEN
     Indication: Drug abuse
  10. METOCLOPRAMIDE [Suspect]
     Active Substance: METOCLOPRAMIDE
     Indication: Drug abuse
  11. METHADONE [Suspect]
     Active Substance: METHADONE HYDROCHLORIDE
     Indication: Drug abuse
  12. MORPHINE [Suspect]
     Active Substance: MORPHINE
     Indication: Drug abuse
  13. ZOLPIDEM [Suspect]
     Active Substance: ZOLPIDEM TARTRATE
     Indication: Drug abuse

REACTIONS (2)
  - Completed suicide [Fatal]
  - Drug abuse [Fatal]
